FAERS Safety Report 8050537-1 (Version None)
Quarter: 2012Q1

REPORT INFORMATION
  Report Type: 
  Country: None (occurrence: None)
  Receive Date: 20120117
  Receipt Date: 20120110
  Transmission Date: 20120608
  Serious: Yes (Hospitalization)
  Sender: FDA-Public Use
  Company Number: JP-PFIZER INC-2012007694

PATIENT
  Age: 42 Year
  Sex: Female

DRUGS (2)
  1. ETHINYL ESTRADIOL [Suspect]
     Indication: METRORRHAGIA
  2. ETHINYL ESTRADIOL [Suspect]
     Indication: OFF LABEL USE
     Dosage: UNK
     Route: 048
     Dates: start: 20111210, end: 20111220

REACTIONS (1)
  - LIVER DISORDER [None]
